FAERS Safety Report 15292966 (Version 1)
Quarter: 2018Q3

REPORT INFORMATION
  Report Type: Spontaneous
  Country: US (occurrence: US)
  Receive Date: 20180807
  Receipt Date: 20180807
  Transmission Date: 20181010
  Serious: Yes (Hospitalization, Disabling)
  Sender: FDA-Public Use
  Company Number: None

PATIENT
  Age: 40 Year
  Sex: Female
  Weight: 57.15 kg

DRUGS (1)
  1. FELBATOL [Suspect]
     Active Substance: FELBAMATE
     Indication: EPILEPSY
     Dosage: ?          QUANTITY:3 TABLET(S);?
     Route: 048

REACTIONS (17)
  - Palpitations [None]
  - Heart rate increased [None]
  - Hypervigilance [None]
  - Crying [None]
  - Dysstasia [None]
  - Chills [None]
  - Balance disorder [None]
  - Somnolence [None]
  - Sensation of blood flow [None]
  - Muscular weakness [None]
  - Depression [None]
  - Respiratory rate increased [None]
  - Discomfort [None]
  - Feeling abnormal [None]
  - Feeling jittery [None]
  - Musculoskeletal disorder [None]
  - Dizziness [None]

NARRATIVE: CASE EVENT DATE: 20180731
